FAERS Safety Report 10613172 (Version 1)
Quarter: 2014Q4

REPORT INFORMATION
  Report Type: Not Available
  Country: US (occurrence: US)
  Receive Date: 20141128
  Receipt Date: 20141128
  Transmission Date: 20150529
  Serious: No
  Sender: FDA-Public Use
  Company Number: US-LUPIN PHARMACEUTICALS INC.-E2B_00001045

PATIENT
  Age: 60 Year
  Sex: Female
  Weight: 81.27 kg

DRUGS (7)
  1. LOSARTAN POTASSIUM/HYDROCHLOROTHIAZIDE TABLETS USP 100MG/25MG (LOSARTAN POTASSIUM AND HYDROCHLOROTHIAZIDE TABLETS USP 100MG/25MG) (HYDROCHLOROTHIAZIDE, LOSARTAN POTASSIUM) [Suspect]
     Active Substance: HYDROCHLOROTHIAZIDE\LOSARTAN POTASSIUM
     Dates: start: 201306, end: 201306
  2. LOSARTAN POTASSIUM/HYDROCHLOROTHIAZIDE TABLETS USP 100MG/25MG (LOSARTAN POTASSIUM AND HYDROCHLOROTHIAZIDE TABLETS USP 100MG/25MG) (HYDROCHLOROTHIAZIDE, LOSARTAN POTASSIUM) [Suspect]
     Active Substance: HYDROCHLOROTHIAZIDE\LOSARTAN POTASSIUM
     Dates: start: 20130701
  3. BRIMONIDINE [Concomitant]
     Active Substance: BRIMONIDINE\BRIMONIDINE TARTRATE
     Indication: GLAUCOMA
     Route: 047
  4. SIMVASTATIN. [Concomitant]
     Active Substance: SIMVASTATIN
     Indication: BLOOD CHOLESTEROL ABNORMAL
  5. DORZOLAMIDE [Concomitant]
     Active Substance: DORZOLAMIDE
     Indication: GLAUCOMA
     Route: 047
  6. LOSARTAN POTASSIUM/HYDROCHLOROTHIAZIDE TABLETS USP 100MG/25MG (LOSARTAN POTASSIUM AND HYDROCHLOROTHIAZIDE TABLETS USP 100MG/25MG) (HYDROCHLOROTHIAZIDE, LOSARTAN POTASSIUM) [Suspect]
     Active Substance: HYDROCHLOROTHIAZIDE\LOSARTAN POTASSIUM
     Indication: HYPERTENSION
     Dates: end: 201306
  7. LATANOPROST (XALATAN) [Concomitant]
     Indication: GLAUCOMA
     Route: 047

REACTIONS (4)
  - Pruritus [Recovered/Resolved]
  - Dyspnoea [Recovered/Resolved]
  - Abdominal discomfort [Recovered/Resolved]
  - Dizziness [Recovered/Resolved]

NARRATIVE: CASE EVENT DATE: 201306
